FAERS Safety Report 5867269-8 (Version None)
Quarter: 2008Q3

REPORT INFORMATION
  Report Type: 
  Country: None (occurrence: None)
  Receive Date: 20080902
  Receipt Date: 20080827
  Transmission Date: 20090109
  Serious: Yes (Other)
  Sender: FDA-Public Use
  Company Number: JP-AVENTIS-200812509JP

PATIENT
  Age: 25 Year
  Sex: Male
  Weight: 83 kg

DRUGS (2)
  1. ALLEGRA [Suspect]
     Indication: RHINITIS ALLERGIC
     Route: 048
     Dates: start: 20040101, end: 20080412
  2. POLARAMINE                         /00043702/ [Concomitant]
     Dosage: DOSE: 10 TABLETS IN 6TIMES
     Dates: start: 20070901

REACTIONS (1)
  - ASTHENOSPERMIA [None]
